FAERS Safety Report 7103854-3 (Version None)
Quarter: 2010Q4

REPORT INFORMATION
  Report Type: 
  Country: None (occurrence: None)
  Receive Date: 20101115
  Receipt Date: 20101109
  Transmission Date: 20110411
  Serious: Yes (Hospitalization)
  Sender: FDA-Public Use
  Company Number: FR-PFIZER INC-2010143597

PATIENT
  Age: 1 Year
  Sex: Male

DRUGS (1)
  1. IBUPROFEN (ADVIL) [Suspect]
     Indication: PYREXIA
     Dosage: UNK
     Dates: start: 20050101

REACTIONS (3)
  - ENCEPHALITIS POST VARICELLA [None]
  - HAEMATEMESIS [None]
  - NECROSIS [None]
